FAERS Safety Report 17412440 (Version 2)
Quarter: 2020Q1

REPORT INFORMATION
  Report Type: Spontaneous
  Country: US (occurrence: US)
  Receive Date: 20200213
  Receipt Date: 20200326
  Transmission Date: 20200409
  Serious: Yes (Other)
  Sender: FDA-Public Use
  Company Number: US-GILEAD-2020-0450640

PATIENT
  Age: 51 Year
  Sex: Male

DRUGS (67)
  1. BIKTARVY [Concomitant]
     Active Substance: BICTEGRAVIR SODIUM\EMTRICITABINE\TENOFOVIR ALAFENAMIDE FUMARATE
     Dosage: UNK
     Dates: start: 201808
  2. HYDRALAZINE [Concomitant]
     Active Substance: HYDRALAZINE HYDROCHLORIDE
  3. TUSSIN [GUAIFENESIN] [Concomitant]
  4. FLU [Concomitant]
     Active Substance: INFLUENZA VIRUS VACCINE
     Dosage: UNK
     Dates: start: 20171109, end: 20171109
  5. XARELTO [Concomitant]
     Active Substance: RIVAROXABAN
  6. GENVOYA [Concomitant]
     Active Substance: COBICISTAT\ELVITEGRAVIR\EMTRICITABINE\TENOFOVIR ALAFENAMIDE FUMARATE
     Dosage: UNK
     Dates: start: 201608, end: 201611
  7. DILTIAZEM. [Concomitant]
     Active Substance: DILTIAZEM
  8. CRESTOR [Concomitant]
     Active Substance: ROSUVASTATIN CALCIUM
  9. DOXYCYCLINE HYCLATE. [Concomitant]
     Active Substance: DOXYCYCLINE HYCLATE
  10. PROAIR HFA [Concomitant]
     Active Substance: ALBUTEROL SULFATE
  11. METHYLPREDNISOLONE. [Concomitant]
     Active Substance: METHYLPREDNISOLONE
  12. PNEUMOVAX 23 [Concomitant]
     Active Substance: PNEUMOCOCCAL VACCINE, POLYVALENT 23
     Dosage: UNK
     Dates: start: 20140109, end: 20140109
  13. EZETIMIBE. [Concomitant]
     Active Substance: EZETIMIBE
  14. ATORVASTATIN [Concomitant]
     Active Substance: ATORVASTATIN
  15. SPIRONOLACTONE. [Concomitant]
     Active Substance: SPIRONOLACTONE
  16. AMOXICILLIN. [Concomitant]
     Active Substance: AMOXICILLIN
  17. PREDNISONE. [Concomitant]
     Active Substance: PREDNISONE
  18. LISINOPRIL. [Concomitant]
     Active Substance: LISINOPRIL
  19. NIFEDICAL XL [Concomitant]
     Active Substance: NIFEDIPINE
  20. MAPAP [Concomitant]
     Active Substance: ACETAMINOPHEN
  21. TDAP [Concomitant]
     Active Substance: TETANUS TOXOID, REDUCED DIPHTHERIA TOXOID AND ACELLULAR PERTUSSIS VACCINE ADSORBED, TDAP
     Dosage: UNK
     Dates: start: 20140109, end: 20140109
  22. ATRIPLA [Suspect]
     Active Substance: EFAVIRENZ\EMTRICITABINE\TENOFOVIR DISOPROXIL FUMARATE
     Indication: HIV INFECTION
     Dosage: 1 DOSAGE FORM, QD
     Route: 048
     Dates: start: 20131212, end: 20160816
  23. LORATADINE. [Concomitant]
     Active Substance: LORATADINE
  24. BANOPHEN [Concomitant]
     Active Substance: DIPHENHYDRAMINE HYDROCHLORIDE
  25. GABAPENTIN. [Concomitant]
     Active Substance: GABAPENTIN
  26. VITAMIN D2 [Concomitant]
     Active Substance: ERGOCALCIFEROL
  27. LABETALOL HCL [Concomitant]
     Active Substance: LABETALOL HYDROCHLORIDE
  28. CALCIUM + VIT D [Concomitant]
     Active Substance: CALCIUM\VITAMIN D
  29. AZITHROMYCIN ANHYDROUS. [Concomitant]
     Active Substance: AZITHROMYCIN ANHYDROUS
  30. PROMETHAZINE [Concomitant]
     Active Substance: PROMETHAZINE HYDROCHLORIDE
  31. CYCLOBENZAPRINE. [Concomitant]
     Active Substance: CYCLOBENZAPRINE
  32. MELATONIN [Concomitant]
     Active Substance: MELATONIN
  33. FLU [Concomitant]
     Active Substance: INFLUENZA VIRUS VACCINE
     Dosage: UNK
     Dates: start: 20131017, end: 20131017
  34. FLU [Concomitant]
     Active Substance: INFLUENZA VIRUS VACCINE
     Dosage: UNK
     Dates: start: 20150910, end: 20150910
  35. METOPROLOL SUCCINATE. [Concomitant]
     Active Substance: METOPROLOL SUCCINATE
  36. MUCUS [Concomitant]
     Active Substance: FLUTICASONE PROPIONATE\GUAIFENESIN
  37. ACETAMINOPHEN EXTRA STRENGTH [Concomitant]
     Active Substance: ACETAMINOPHEN
  38. MUCINEX [Concomitant]
     Active Substance: GUAIFENESIN
  39. MULTIDAY [Concomitant]
  40. BICILLIN [BENZATHINE BENZYLPENICILLIN] [Concomitant]
  41. CORTISONE [Concomitant]
     Active Substance: CORTISONE
  42. DESCOVY [Concomitant]
     Active Substance: EMTRICITABINE\TENOFOVIR ALAFENAMIDE FUMARATE
     Dosage: UNK
     Dates: start: 201611, end: 201711
  43. NIFEDIPINE. [Concomitant]
     Active Substance: NIFEDIPINE
  44. ERYTHROMYCIN. [Concomitant]
     Active Substance: ERYTHROMYCIN
  45. MUPIROCIN. [Concomitant]
     Active Substance: MUPIROCIN
  46. COUMADIN [Concomitant]
     Active Substance: WARFARIN SODIUM
     Dosage: UNK
     Dates: start: 201610, end: 2017
  47. MENACTRA [Concomitant]
     Active Substance: NEISSERIA MENINGITIDIS GROUP A CAPSULAR POLYSACCHARIDE DIPHTHERIA TOXOID CONJUGATE ANTIGEN\NEISSERIA MENINGITIDIS GROUP C CAPSULAR POLYSACCHARIDE DIPHTHERIA TOXOID CONJUGATE ANTIGEN\NEISSERIA MENINGITIDIS GROUP W-135 CAPSULAR POLYSACCHARIDE DIPHTHERIA TOXOID CONJUGATE ANTIGEN\NEISSERIA MENINGITIDIS
  48. AFLURIA [INFLUENZA VACCINE] [Concomitant]
  49. GENVOYA [Concomitant]
     Active Substance: COBICISTAT\ELVITEGRAVIR\EMTRICITABINE\TENOFOVIR ALAFENAMIDE FUMARATE
     Dosage: UNK
     Dates: start: 201711, end: 201808
  50. TIVICAY [Concomitant]
     Active Substance: DOLUTEGRAVIR SODIUM
     Dosage: UNK
     Dates: start: 201611, end: 201711
  51. KLOR-CON [Concomitant]
     Active Substance: POTASSIUM CHLORIDE
  52. SPIRONOLACTONE AND HYDROCHLOROTHIAZIDE [Concomitant]
     Active Substance: HYDROCHLOROTHIAZIDE\SPIRONOLACTONE
  53. ASPIRIN [ACETYLSALICYLIC ACID] [Concomitant]
     Active Substance: ASPIRIN
  54. MIRTAZAPINE. [Concomitant]
     Active Substance: MIRTAZAPINE
  55. BENZONATATE. [Concomitant]
     Active Substance: BENZONATATE
  56. OSELTAMIVIR PHOSPHATE. [Concomitant]
     Active Substance: OSELTAMIVIR PHOSPHATE
  57. FLU [Concomitant]
     Active Substance: INFLUENZA VIRUS VACCINE
     Dosage: UNK
     Dates: start: 20141006, end: 20141006
  58. FISH OIL [Concomitant]
     Active Substance: FISH OIL
  59. CEFTRIAXONE. [Concomitant]
     Active Substance: CEFTRIAXONE
  60. THERAFLU [GUAIFENESIN;PARACETAMOL;PHENYLEPHRINE HYDROCHLORIDE] [Concomitant]
  61. TAMSULOSIN HCL [Concomitant]
     Active Substance: TAMSULOSIN HYDROCHLORIDE
  62. VENTOLIN HFA [Concomitant]
     Active Substance: ALBUTEROL SULFATE
  63. CHLORHEXIDINE [Concomitant]
     Active Substance: CHLORHEXIDINE
  64. IBUPROFEN. [Concomitant]
     Active Substance: IBUPROFEN
  65. HYDROCHLOROTHIAZIDE. [Concomitant]
     Active Substance: HYDROCHLOROTHIAZIDE
  66. POTASSIUM CHLORIDE. [Concomitant]
     Active Substance: POTASSIUM CHLORIDE
  67. VICKS NYQUIL [Concomitant]
     Active Substance: ACETAMINOPHEN\DEXTROMETHORPHAN HYDROBROMIDE\DOXYLAMINE SUCCINATE

REACTIONS (6)
  - Anxiety [Unknown]
  - Anhedonia [Unknown]
  - Pain [Unknown]
  - Emotional distress [Unknown]
  - Economic problem [Unknown]
  - Chronic kidney disease [Not Recovered/Not Resolved]

NARRATIVE: CASE EVENT DATE: 20140620
